FAERS Safety Report 21642516 (Version 1)
Quarter: 2022Q4

REPORT INFORMATION
  Report Type: Spontaneous
  Country: US (occurrence: US)
  Receive Date: 20221125
  Receipt Date: 20221125
  Transmission Date: 20230113
  Serious: No
  Sender: FDA-Public Use
  Company Number: US-GLAND PHARMA LIMITED-2022US004444

PATIENT

DRUGS (1)
  1. NOREPINEPHRINE BITARTRATE [Suspect]
     Active Substance: NOREPINEPHRINE BITARTRATE
     Indication: Hypotension
     Dosage: UNK
     Route: 042
     Dates: start: 20220919, end: 20220919

REACTIONS (4)
  - Hypotension [Unknown]
  - Device failure [Unknown]
  - Device occlusion [Unknown]
  - Device kink [Unknown]

NARRATIVE: CASE EVENT DATE: 20220919
